FAERS Safety Report 7521612-2 (Version None)
Quarter: 2011Q2

REPORT INFORMATION
  Report Type: 
  Country: None (occurrence: None)
  Receive Date: 20110524
  Receipt Date: 20110511
  Transmission Date: 20111010
  Serious: Yes (Hospitalization)
  Sender: FDA-Public Use
  Company Number: CIP11000566

PATIENT
  Age: 63 Year
  Sex: Female
  Weight: 48.5 kg

DRUGS (16)
  1. CLARITIN-D [Concomitant]
  2. AMBIEN [Concomitant]
  3. FLONASE [Concomitant]
  4. ACTONEL [Suspect]
     Dosage: 5 MG DAILY, ORAL
     Route: 048
     Dates: start: 20010808
  5. PROMETHAZINE HCL AND CODEINE PHOSPHATE [Concomitant]
  6. FOSAMAX [Suspect]
     Indication: OSTEOPOROSIS
     Dosage: 35 MG WEEKLY, ORAL
     Route: 048
     Dates: start: 20030415
  7. LEVAQUIN [Concomitant]
  8. ACTONEL [Suspect]
     Dosage: 30 MG. ORAL
     Route: 048
     Dates: start: 20030106
  9. EVISTA /01303201/(RALOXIFENE) [Concomitant]
  10. ACTONEL [Suspect]
     Dosage: 35 MG WEEKLY, ORAL; 35 MG, 1/WEEK, ORAL
     Route: 048
     Dates: start: 20030325
  11. ACTONEL [Suspect]
     Dosage: 35 MG WEEKLY, ORAL; 35 MG, 1/WEEK, ORAL
     Route: 048
     Dates: start: 20031107
  12. FOSAMAX [Suspect]
     Dosage: 70 MG WEEKLY, ORAL
     Route: 048
     Dates: start: 20051027, end: 20080221
  13. FOSAMAX PLUS D [Suspect]
     Dosage: 70 MG WEEKLY, ORAL
     Route: 048
     Dates: start: 20060421
  14. CELEBREX [Concomitant]
  15. ZYRTEC [Concomitant]
  16. PREMPRO [Concomitant]

REACTIONS (10)
  - GROIN PAIN [None]
  - PAIN IN EXTREMITY [None]
  - FRACTURE DISPLACEMENT [None]
  - FALL [None]
  - EXOSTOSIS [None]
  - PATHOLOGICAL FRACTURE [None]
  - ARTHRALGIA [None]
  - STRESS FRACTURE [None]
  - FEMUR FRACTURE [None]
  - PAIN [None]
